FAERS Safety Report 9243261 (Version 4)
Quarter: 2013Q3

REPORT INFORMATION
  Report Type: Report from Study
  Country: US (occurrence: US)
  Receive Date: 20130419
  Receipt Date: 20130916
  Transmission Date: 20140515
  Serious: Yes (Hospitalization, Other)
  Sender: FDA-Public Use
  Company Number: US-US-EMD SERONO, INC.-7205510

PATIENT
  Age: 48 Year
  Sex: Female
  Weight: 103 kg

DRUGS (6)
  1. REBIF [Suspect]
     Indication: MULTIPLE SCLEROSIS
     Route: 058
     Dates: start: 20130307
  2. PREDNISONE [Concomitant]
     Indication: PRODUCT USED FOR UNKNOWN INDICATION
  3. LEVOTHYROXINE [Concomitant]
     Indication: HYPOTHYROIDISM
  4. FUROSEMIDE [Concomitant]
     Indication: HYPERTENSION
  5. LANTUS [Concomitant]
     Indication: DIABETES MELLITUS
  6. METFORMIN [Concomitant]
     Indication: DIABETES MELLITUS

REACTIONS (8)
  - Cellulitis [Recovering/Resolving]
  - Blood glucose increased [Unknown]
  - Memory impairment [Unknown]
  - Nausea [Recovering/Resolving]
  - Multiple sclerosis relapse [Unknown]
  - Pain [Unknown]
  - Influenza like illness [Unknown]
  - Headache [Not Recovered/Not Resolved]
